FAERS Safety Report 14636171 (Version 1)
Quarter: 2018Q1

REPORT INFORMATION
  Report Type: Not Available
  Country: US (occurrence: US)
  Receive Date: 20180314
  Receipt Date: 20180314
  Transmission Date: 20180509
  Serious: No
  Sender: FDA-Public Use
  Company Number: US-FOUNDATIONCONSUMERHC-2018-US-001054

PATIENT
  Age: 25 Year
  Sex: Female
  Weight: 108.86 kg

DRUGS (1)
  1. PLAN B ONE-STEP [Suspect]
     Active Substance: LEVONORGESTREL
     Dosage: 1.5MG TABLET X 1 DOSE
     Route: 048
     Dates: start: 20180116, end: 20180116

REACTIONS (2)
  - Dysmenorrhoea [Unknown]
  - Oligomenorrhoea [Unknown]

NARRATIVE: CASE EVENT DATE: 20180116
